FAERS Safety Report 4275498-2 (Version None)
Quarter: 2004Q1

REPORT INFORMATION
  Report Type: 
  Country: None (occurrence: None)
  Receive Date: 20040116
  Receipt Date: 20040107
  Transmission Date: 20041129
  Serious: Yes (Hospitalization)
  Sender: FDA-Public Use
  Company Number: KDL062749

PATIENT
  Age: 53 Year
  Sex: Female

DRUGS (11)
  1. EPOGEN [Suspect]
     Indication: PRE-EXISTING DISEASE
     Dosage: 12000 U, WEEKLY, SC
     Route: 058
     Dates: start: 20030924, end: 20031119
  2. CYCLOPHOSPHAMIDE [Concomitant]
  3. ENALAPRIL MALEATE [Concomitant]
  4. QUINAPRIL HYDROCHLORIDE [Concomitant]
  5. CANDESARTAN CILEXETIL [Concomitant]
  6. PREDNISONE [Concomitant]
  7. FUROSEMIDE [Concomitant]
  8. IPRATROPIUM BROMIDE/ALBUTEROL SULFATE [Concomitant]
  9. ATORVASTATIN CALCIUM [Concomitant]
  10. HYDROXYCHLOROQUINE SULFATE [Concomitant]
  11. ESOMEPRAZOLE MAGNESIUM [Concomitant]

REACTIONS (4)
  - ASTHMA [None]
  - CONDITION AGGRAVATED [None]
  - SYSTEMIC LUPUS ERYTHEMATOSUS [None]
  - UPPER RESPIRATORY TRACT INFECTION [None]
